FAERS Safety Report 7824853-X (Version None)
Quarter: 2011Q4

REPORT INFORMATION
  Report Type: 
  Country: None (occurrence: None)
  Receive Date: 20111019
  Receipt Date: 20110215
  Transmission Date: 20120403
  Serious: Yes (Hospitalization)
  Sender: FDA-Public Use
  Company Number: US-BRISTOL-MYERS SQUIBB COMPANY-15550965

PATIENT
  Age: 51 Year
  Sex: Male

DRUGS (1)
  1. AVALIDE [Suspect]
     Dosage: 1 DF: AVALIDE 300/25 MG

REACTIONS (2)
  - DIZZINESS [None]
  - DYSPNOEA [None]
